FAERS Safety Report 21325710 (Version 1)
Quarter: 2022Q3

REPORT INFORMATION
  Report Type: Spontaneous
  Country: US (occurrence: None)
  Receive Date: 20220912
  Receipt Date: 20220912
  Transmission Date: 20221027
  Serious: No
  Sender: FDA-Public Use
  Company Number: 2022A304042

PATIENT
  Age: 785 Month
  Sex: Female
  Weight: 96.6 kg

DRUGS (1)
  1. XIGDUO XR [Suspect]
     Active Substance: DAPAGLIFLOZIN PROPANEDIOL\METFORMIN HYDROCHLORIDE
     Indication: Diabetes mellitus
     Route: 048
     Dates: start: 202205

REACTIONS (5)
  - Diarrhoea [Unknown]
  - Blood glucose increased [Unknown]
  - Weight decreased [Unknown]
  - Constipation [Unknown]
  - Off label use [Unknown]
